FAERS Safety Report 6884937-X (Version None)
Quarter: 2010Q3

REPORT INFORMATION
  Report Type: 
  Country: None (occurrence: None)
  Receive Date: 20100729
  Receipt Date: 20071001
  Transmission Date: 20110219
  Serious: Yes (Other)
  Sender: FDA-Public Use
  Company Number: US-PFIZER INC-2007082231

PATIENT
  Sex: Male
  Weight: 78.181 kg

DRUGS (3)
  1. CELEBREX [Suspect]
     Indication: ARTHROPATHY
     Dates: start: 20070901
  2. PRAVASTATIN [Concomitant]
  3. TOPROL-XL [Concomitant]

REACTIONS (1)
  - RASH [None]
